FAERS Safety Report 7279637-0 (Version None)
Quarter: 2011Q1

REPORT INFORMATION
  Report Type: 
  Country: None (occurrence: None)
  Receive Date: 20110203
  Receipt Date: 20110203
  Transmission Date: 20110831
  Serious: No
  Sender: FDA-Public Use
  Company Number: None

PATIENT
  Sex: Female

DRUGS (1)
  1. TAXOL [Suspect]
     Dosage: 10 MG

REACTIONS (7)
  - LOSS OF CONSCIOUSNESS [None]
  - NAUSEA [None]
  - FEELING HOT [None]
  - PULSE ABSENT [None]
  - VOMITING [None]
  - HYPERSENSITIVITY [None]
  - DYSPNOEA [None]
